FAERS Safety Report 4367051-7 (Version None)
Quarter: 2004Q2

REPORT INFORMATION
  Report Type: 
  Country: None (occurrence: None)
  Receive Date: 20040528
  Receipt Date: 20040525
  Transmission Date: 20050107
  Serious: Yes (Hospitalization)
  Sender: FDA-Public Use
  Company Number: JP-JNJFOC-20040506140

PATIENT
  Sex: Female

DRUGS (7)
  1. RISPERDAL [Suspect]
     Route: 049
  2. RISPERDAL [Suspect]
     Indication: SCHIZOPHRENIA
     Route: 049
  3. BIPERIDEN HYDROCHLORIDE [Concomitant]
     Route: 065
  4. BROMOCRIPTINE MESYLATE [Concomitant]
     Route: 065
  5. BROTIZOLAM [Concomitant]
     Route: 065
  6. ETHYL LOFLAZEPATE [Concomitant]
     Route: 065
  7. DIAZEPAM [Concomitant]
     Route: 065

REACTIONS (2)
  - HYPERPROLACTINAEMIA [None]
  - OVARIAN CYST [None]
